FAERS Safety Report 24988825 (Version 2)
Quarter: 2025Q3

REPORT INFORMATION
  Report Type: Report from Study
  Country: CN (occurrence: CN)
  Receive Date: 20250220
  Receipt Date: 20250813
  Transmission Date: 20251021
  Serious: No
  Sender: ROCHE
  Company Number: CN-ROCHE-10000212281

PATIENT
  Age: 53 Year
  Sex: Female
  Weight: 57 kg

DRUGS (12)
  1. POLATUZUMAB VEDOTIN [Suspect]
     Active Substance: POLATUZUMAB VEDOTIN
     Indication: Diffuse large B-cell lymphoma
     Route: 042
     Dates: start: 20241126, end: 20241126
  2. ZUBERITAMAB [Suspect]
     Active Substance: ZUBERITAMAB
     Indication: Diffuse large B-cell lymphoma
     Route: 042
     Dates: start: 20241125, end: 20241125
  3. ZUBERITAMAB [Suspect]
     Active Substance: ZUBERITAMAB
     Route: 042
     Dates: start: 20250114, end: 20250114
  4. CYCLOPHOSPHAMIDE [Suspect]
     Active Substance: CYCLOPHOSPHAMIDE
     Indication: Diffuse large B-cell lymphoma
     Route: 042
     Dates: start: 20241126, end: 20241127
  5. DOXORUBICIN HYDROCHLORIDE [Suspect]
     Active Substance: DOXORUBICIN HYDROCHLORIDE
     Indication: Diffuse large B-cell lymphoma
     Route: 042
     Dates: start: 20241126, end: 20241127
  6. DIPHENHYDRAMINE [Concomitant]
     Active Substance: DIPHENHYDRAMINE
     Route: 030
     Dates: start: 20250114, end: 20250114
  7. DEXAMETHASONE SODIUM PHOSPHATE [Concomitant]
     Active Substance: DEXAMETHASONE SODIUM PHOSPHATE
     Route: 042
     Dates: start: 20250114, end: 20250114
  8. ALBUMIN HUMAN [Concomitant]
     Active Substance: ALBUMIN HUMAN
     Indication: Nutritional supplementation
     Route: 042
     Dates: start: 20250114, end: 20250114
  9. Omeprazole Sodium for Injection [Concomitant]
     Route: 042
     Dates: start: 20250114, end: 20250114
  10. AMINO ACIDS, SOURCE UNSPECIFIED [Concomitant]
     Active Substance: AMINO ACIDS, SOURCE UNSPECIFIED
  11. Calcitriol Soft Capsules [Concomitant]
  12. ACETAMINOPHEN [Concomitant]
     Active Substance: ACETAMINOPHEN

REACTIONS (1)
  - Hyperphosphataemia [Not Recovered/Not Resolved]

NARRATIVE: CASE EVENT DATE: 20250114
